FAERS Safety Report 17367087 (Version 2)
Quarter: 2020Q4

REPORT INFORMATION
  Report Type: Spontaneous
  Country: US (occurrence: US)
  Receive Date: 20200204
  Receipt Date: 20201021
  Transmission Date: 20210113
  Serious: Yes (Hospitalization)
  Sender: FDA-Public Use
  Company Number: US-PFIZER INC-2015286749

PATIENT
  Age: 77 Year
  Sex: Female
  Weight: 55.33 kg

DRUGS (4)
  1. RAPAMUNE [Suspect]
     Active Substance: SIROLIMUS
     Indication: HEART TRANSPLANT
     Dosage: 1 MG, DAILY
     Route: 048
     Dates: start: 20150821
  2. RAPAMUNE [Suspect]
     Active Substance: SIROLIMUS
     Dosage: 1 MG, 1X/DAY
     Route: 048
  3. RAPAMUNE [Suspect]
     Active Substance: SIROLIMUS
     Indication: NEUROPATHY PERIPHERAL
     Dosage: 1 MG, DAILY
     Route: 048
     Dates: start: 20190116
  4. RAPAMUNE [Suspect]
     Active Substance: SIROLIMUS
     Dosage: 1 DF, DAILY
     Route: 048

REACTIONS (3)
  - Product use in unapproved indication [Unknown]
  - Swelling [Unknown]
  - Off label use [Unknown]

NARRATIVE: CASE EVENT DATE: 20150821
